FAERS Safety Report 16760569 (Version 1)
Quarter: 2019Q3

REPORT INFORMATION
  Report Type: Report from Study
  Country: FI (occurrence: FI)
  Receive Date: 20190830
  Receipt Date: 20190830
  Transmission Date: 20191005
  Serious: Yes (Life-Threatening, Hospitalization, Other)
  Sender: FDA-Public Use
  Company Number: FI-RECRO GAINESVILLE LLC-REPH-2019-000162

PATIENT
  Age: 68 Year
  Sex: Female

DRUGS (2)
  1. ASPIRIN                            /00002701/ [Concomitant]
     Active Substance: ASPIRIN
     Dosage: UNK, OCCASIONAL
     Route: 048
  2. VERAPAMIL HYDROCHLORIDE SUSTAINED RELEASE [Suspect]
     Active Substance: VERAPAMIL HYDROCHLORIDE
     Dosage: 80- 80 MG TABLETS (6.4 G); ONE TIME DOSE
     Route: 048

REACTIONS (8)
  - Anuria [Recovered/Resolved]
  - Poisoning [Recovered/Resolved]
  - Hypotension [Recovered/Resolved]
  - Bradycardia [Recovered/Resolved]
  - Nodal rhythm [Recovered/Resolved]
  - Hypothermia [Recovered/Resolved]
  - Loss of consciousness [Recovered/Resolved]
  - Intentional overdose [Recovered/Resolved]
